FAERS Safety Report 18124074 (Version 1)
Quarter: 2020Q3

REPORT INFORMATION
  Report Type: Spontaneous
  Country: US (occurrence: US)
  Receive Date: 20200807
  Receipt Date: 20200807
  Transmission Date: 20201103
  Serious: Yes (Disabling)
  Sender: FDA-Public Use
  Company Number: None

PATIENT
  Age: 84 Year
  Sex: Female
  Weight: 42.75 kg

DRUGS (2)
  1. PROLIA [Suspect]
     Active Substance: DENOSUMAB
     Indication: OSTEOPOROSIS POSTMENOPAUSAL
     Dates: start: 20200731, end: 20200731
  2. MULTI?VITAMINS [Concomitant]

REACTIONS (7)
  - Rash vesicular [None]
  - Back pain [None]
  - Discomfort [None]
  - Product communication issue [None]
  - Loss of personal independence in daily activities [None]
  - Abdominal pain upper [None]
  - Pain in extremity [None]

NARRATIVE: CASE EVENT DATE: 20200807
